FAERS Safety Report 11926670 (Version 4)
Quarter: 2016Q2

REPORT INFORMATION
  Report Type: Spontaneous
  Country: JP (occurrence: JP)
  Receive Date: 20160119
  Receipt Date: 20160609
  Transmission Date: 20160815
  Serious: Yes (Hospitalization, Disabling, Other)
  Sender: FDA-Public Use
  Company Number: JP-ELI_LILLY_AND_COMPANY-JP201601003866

PATIENT
  Age: 80 Year
  Sex: Male
  Weight: 65 kg

DRUGS (9)
  1. ANHIBA [Concomitant]
     Active Substance: ACETAMINOPHEN
     Indication: BACK PAIN
     Dosage: 200 MG, PRN
     Route: 054
     Dates: start: 20151231, end: 20151231
  2. LACTEC                             /00490001/ [Concomitant]
     Dosage: UNK
     Route: 042
     Dates: start: 20160105
  3. REBAMIPIDE [Concomitant]
     Active Substance: REBAMIPIDE
     Indication: GASTRITIS PROPHYLAXIS
     Dosage: 100 MG, TID
     Route: 048
     Dates: start: 20151231
  4. BAYASPIRIN [Concomitant]
     Active Substance: ASPIRIN
     Indication: CEREBRAL INFARCTION
     Dosage: 100 MG, EACH MORNING
     Route: 048
     Dates: end: 20160104
  5. FORTEO [Suspect]
     Active Substance: TERIPARATIDE
     Indication: OSTEOPOROSIS
     Dosage: 20 UG, QD
     Route: 058
     Dates: start: 20151231, end: 20160106
  6. VOLTAREN [Concomitant]
     Active Substance: DICLOFENAC SODIUM
     Indication: BACK PAIN
     Dosage: 50 MG, PRN
     Route: 054
     Dates: start: 20151231, end: 20151231
  7. LACTEC                             /00490001/ [Concomitant]
     Dosage: UNK
     Route: 042
     Dates: start: 20151231, end: 20160103
  8. SENNARIDE [Concomitant]
     Active Substance: SENNOSIDES A AND B
     Indication: CONSTIPATION
     Dosage: 24 MG, EACH EVENING
     Route: 048
  9. COCARL [Concomitant]
     Active Substance: ACETAMINOPHEN
     Indication: BACK PAIN
     Dosage: UNK
     Route: 048
     Dates: start: 20151231

REACTIONS (6)
  - Gastritis erosive [Unknown]
  - Acute kidney injury [Recovering/Resolving]
  - Gastrointestinal mucosal disorder [Unknown]
  - Metastases to bone [Unknown]
  - Prostate cancer [Unknown]
  - Anaemia [Unknown]

NARRATIVE: CASE EVENT DATE: 20160101
